FAERS Safety Report 7482039-5 (Version None)
Quarter: 2011Q2

REPORT INFORMATION
  Report Type: 
  Country: None (occurrence: None)
  Receive Date: 20110516
  Receipt Date: 20110502
  Transmission Date: 20111010
  Serious: Yes (Other)
  Sender: FDA-Public Use
  Company Number: FR-JNJFOC-20100703027

PATIENT
  Sex: Female
  Weight: 31.6 kg

DRUGS (3)
  1. AZATHIOPRINE [Concomitant]
  2. INFLIXIMAB [Suspect]
     Indication: INFLAMMATORY BOWEL DISEASE
     Route: 042
     Dates: start: 20091211
  3. INFLIXIMAB [Suspect]
     Route: 042
     Dates: start: 20100525, end: 20100525

REACTIONS (3)
  - HYPERSENSITIVITY [None]
  - RESPIRATORY DISTRESS [None]
  - INFUSION RELATED REACTION [None]
